FAERS Safety Report 5975457-5 (Version None)
Quarter: 2008Q4

REPORT INFORMATION
  Report Type: 
  Country: None (occurrence: None)
  Receive Date: 20081202
  Receipt Date: 20081117
  Transmission Date: 20090506
  Serious: Yes (Hospitalization)
  Sender: FDA-Public Use
  Company Number: DE-BIOGENIDEC-2008BI031147

PATIENT
  Age: 37 Year
  Sex: Female

DRUGS (2)
  1. AVONEX [Suspect]
     Indication: MULTIPLE SCLEROSIS
     Route: 030
     Dates: start: 20020707
  2. AVONEX [Suspect]
     Route: 030

REACTIONS (4)
  - ABASIA [None]
  - APHASIA [None]
  - COGNITIVE DISORDER [None]
  - MOTOR DYSFUNCTION [None]
